FAERS Safety Report 9135398 (Version 1)
Quarter: 2013Q1

REPORT INFORMATION
  Report Type: Spontaneous
  Country: US (occurrence: US)
  Receive Date: 20130304
  Receipt Date: 20130304
  Transmission Date: 20140127
  Serious: No
  Sender: FDA-Public Use
  Company Number: US-ENDO PHARMACEUTICALS INC.-ENDC20110186

PATIENT
  Age: 82 Year
  Sex: Female
  Weight: 71.73 kg

DRUGS (2)
  1. ENDOCET [Suspect]
     Indication: PAIN
     Dosage: UNKNOWN
     Route: 048
  2. ENDOCET [Suspect]
     Dosage: 5/162.5 MG
     Route: 048
     Dates: start: 201107, end: 201107

REACTIONS (3)
  - Incoherent [Recovered/Resolved]
  - Asthenia [Recovered/Resolved]
  - Dyspnoea [Recovered/Resolved]
